FAERS Safety Report 4970417-5 (Version None)
Quarter: 2006Q2

REPORT INFORMATION
  Report Type: 
  Country: None (occurrence: None)
  Receive Date: 20060412
  Receipt Date: 20060309
  Transmission Date: 20061013
  Serious: Yes (Hospitalization, Other)
  Sender: FDA-Public Use
  Company Number: PHBS2006BE03599

PATIENT
  Age: 46 Year
  Sex: Female
  Weight: 78 kg

DRUGS (6)
  1. MEDROL [Concomitant]
     Dosage: 32 MG, BID
     Dates: start: 20060207
  2. DICLOFENAC [Suspect]
     Dosage: UNK, UNK
     Dates: start: 20060101
  3. BURINEX [Suspect]
  4. PREDNISOLONE [Concomitant]
     Dosage: 2.5 UNK, UNK
     Dates: start: 20060119, end: 20060119
  5. SIMVASTATIN [Concomitant]
     Dates: start: 20060203
  6. SANDIMMUNE [Suspect]
     Indication: PSORIASIS
     Dosage: 125 MG, BID
     Route: 048
     Dates: start: 20051201

REACTIONS (13)
  - ALANINE AMINOTRANSFERASE INCREASED [None]
  - ASPARTATE AMINOTRANSFERASE INCREASED [None]
  - BLOOD CREATININE INCREASED [None]
  - BLOOD LACTATE DEHYDROGENASE INCREASED [None]
  - BLOOD UREA INCREASED [None]
  - BLOOD URIC ACID INCREASED [None]
  - C-REACTIVE PROTEIN INCREASED [None]
  - DIALYSIS [None]
  - GAMMA-GLUTAMYLTRANSFERASE INCREASED [None]
  - OLIGURIA [None]
  - RED BLOOD CELL SEDIMENTATION RATE INCREASED [None]
  - RENAL FAILURE ACUTE [None]
  - WHITE BLOOD CELL COUNT INCREASED [None]
